FAERS Safety Report 5044951-6 (Version None)
Quarter: 2006Q2

REPORT INFORMATION
  Report Type: 
  Country: None (occurrence: None)
  Receive Date: 20060601
  Receipt Date: 20060323
  Transmission Date: 20061013
  Serious: No
  Sender: FDA-Public Use
  Company Number: US200603005999

PATIENT
  Age: 47 Year
  Sex: Female

DRUGS (5)
  1. CYMBALTA [Suspect]
     Indication: DEPRESSION
     Dosage: SEE IMAGE
     Dates: start: 20050101, end: 20050101
  2. PROZAC [Suspect]
     Indication: DEPRESSION
     Dosage: 15 MG, 2/D
     Dates: start: 20060301
  3. HALOPERIDOL [Concomitant]
  4. XANAX /USA/(ALPRAZOLAM) [Concomitant]
  5. LEXAPRO /USA/(ESCITALOPRAM) [Concomitant]

REACTIONS (4)
  - CONSTIPATION [None]
  - DRUG EFFECT DECREASED [None]
  - FEELING JITTERY [None]
  - MOOD ALTERED [None]
